FAERS Safety Report 13401643 (Version 1)
Quarter: 2017Q2

REPORT INFORMATION
  Report Type: Report from Study
  Country: None (occurrence: BR)
  Receive Date: 20170404
  Receipt Date: 20170404
  Transmission Date: 20170830
  Serious: Yes (Hospitalization, Other)
  Sender: FDA-Public Use
  Company Number: BR-ABBVIE-17P-020-1923209-00

PATIENT
  Age: 43 Year
  Sex: Female
  Weight: 64 kg

DRUGS (1)
  1. ADALIMUMAB [Suspect]
     Active Substance: ADALIMUMAB
     Indication: RHEUMATOID ARTHRITIS
     Route: 058
     Dates: start: 201611, end: 201701

REACTIONS (13)
  - Pyrexia [Unknown]
  - Trismus [Unknown]
  - Weight decreased [Not Recovered/Not Resolved]
  - Vaginal haemorrhage [Recovered/Resolved]
  - Decreased appetite [Recovering/Resolving]
  - Respiratory rate increased [Recovered/Resolved]
  - Hypersensitivity [Unknown]
  - Myocardial infarction [Unknown]
  - Blood pressure abnormal [Unknown]
  - Mobility decreased [Unknown]
  - Fall [Unknown]
  - Urinary tract infection [Recovered/Resolved]
  - Allergic oedema [Recovered/Resolved]

NARRATIVE: CASE EVENT DATE: 201611
